FAERS Safety Report 21016415 (Version 4)
Quarter: 2022Q3

REPORT INFORMATION
  Report Type: Spontaneous
  Country: BR (occurrence: BR)
  Receive Date: 20220628
  Receipt Date: 20220713
  Transmission Date: 20221027
  Serious: Yes (Hospitalization, Other)
  Sender: FDA-Public Use
  Company Number: BR-Ipsen Biopharmaceuticals, Inc.-2022-18244

PATIENT
  Age: 48 Year
  Sex: Male
  Weight: 98 kg

DRUGS (10)
  1. LANREOTIDE ACETATE [Suspect]
     Active Substance: LANREOTIDE ACETATE
     Indication: Acromegaly
     Route: 058
     Dates: start: 202001
  2. LANREOTIDE ACETATE [Suspect]
     Active Substance: LANREOTIDE ACETATE
     Route: 058
     Dates: start: 2022
  3. LEVOTHYROXINE [Concomitant]
     Active Substance: LEVOTHYROXINE
  4. METFORMIN [Concomitant]
     Active Substance: METFORMIN HYDROCHLORIDE
     Indication: Diabetes mellitus
     Route: 048
     Dates: start: 2003
  5. SIMVASTATIN [Concomitant]
     Active Substance: SIMVASTATIN
     Indication: Dyslipidaemia
     Dosage: MID
  6. CHOLECALCIFEROL [Concomitant]
     Active Substance: CHOLECALCIFEROL
     Dosage: 7000UI
  7. HORMUS [Concomitant]
     Indication: Hypogonadism
     Dosage: 1000MG 3/3M
     Route: 030
     Dates: start: 2020
  8. CABERGOLINE [Concomitant]
     Active Substance: CABERGOLINE
     Indication: Acromegaly
     Dosage: 4X PER WEEK
     Route: 048
     Dates: start: 2007
  9. VITAMIN K [Concomitant]
     Active Substance: PHYTONADIONE
     Dosage: ON ITS OWN
  10. PREDNISONE [Concomitant]
     Active Substance: PREDNISONE
     Indication: Adrenal insufficiency
     Dates: start: 2003

REACTIONS (9)
  - Myalgia [Unknown]
  - Hepatic enzyme abnormal [Unknown]
  - Pyrexia [Unknown]
  - Rhinitis [Unknown]
  - Headache [Unknown]
  - Spinal fracture [Unknown]
  - Application site pain [Unknown]
  - Application site nodule [Unknown]
  - Needle issue [Unknown]

NARRATIVE: CASE EVENT DATE: 20200701
